FAERS Safety Report 19229855 (Version 1)
Quarter: 2021Q2

REPORT INFORMATION
  Report Type: Spontaneous
  Country: PT (occurrence: PT)
  Receive Date: 20210506
  Receipt Date: 20210506
  Transmission Date: 20210717
  Serious: Yes (Life-Threatening, Hospitalization, Other)
  Sender: FDA-Public Use
  Company Number: PT-ALLERGAN-2117001US

PATIENT
  Sex: Female

DRUGS (7)
  1. ASPIRINA [Concomitant]
     Active Substance: ASPIRIN
     Dosage: 100 MG
  2. NIFEDIPINA [Concomitant]
     Active Substance: NIFEDIPINE
     Dosage: 20 MG
  3. ACETILCISTEINA [Concomitant]
     Active Substance: ACETYLCYSTEINE
     Dosage: 600 MG
  4. SPIRIVA [Concomitant]
     Active Substance: TIOTROPIUM BROMIDE MONOHYDRATE
     Dosage: 18 ?G
     Route: 055
  5. NEXIUM I.V. [Concomitant]
     Active Substance: ESOMEPRAZOLE SODIUM
     Dosage: 40 MG
  6. PYLERA [Suspect]
     Active Substance: BISMUTH SUBCITRATE POTASSIUM\METRONIDAZOLE\TETRACYCLINE HYDROCHLORIDE
     Indication: HELICOBACTER INFECTION
     Dosage: UNK
     Dates: start: 201912, end: 201912
  7. MICOFENOLATO DE MOFETILA [Concomitant]
     Active Substance: MYCOPHENOLATE MOFETIL
     Dosage: 2G IN 2 SEPARATE DOSES

REACTIONS (4)
  - Wrong technique in product usage process [Unknown]
  - Laryngeal oedema [Recovered/Resolved]
  - Blood potassium decreased [Recovered/Resolved]
  - Anaphylactic reaction [Recovered/Resolved]

NARRATIVE: CASE EVENT DATE: 201912
